FAERS Safety Report 10606281 (Version 1)
Quarter: 2014Q4

REPORT INFORMATION
  Report Type: Spontaneous
  Country: GB (occurrence: None)
  Receive Date: 20141121
  Receipt Date: 20141121
  Transmission Date: 20150529
  Serious: Yes (Hospitalization, Other)
  Sender: FDA-Public Use
  Company Number: FK201405344

PATIENT
  Age: 68 Year
  Sex: Female

DRUGS (9)
  1. MIRTAZAPINE (MIRTAZAPINE) [Concomitant]
     Active Substance: MIRTAZAPINE
  2. QUETIAPINE FUMARATE (QUETIAPINE FUMARATE) [Concomitant]
     Active Substance: QUETIAPINE FUMARATE
  3. SODIUM VALPROATE (VALPROATE SODIUM) [Concomitant]
     Active Substance: VALPROATE SODIUM
  4. GALANTAMINE (GALANTAMINE) [Concomitant]
  5. CEFALEXIN (CEFALEXIN) [Concomitant]
     Active Substance: CEPHALEXIN
  6. FOLIC ACID (FOLIC ACID) [Concomitant]
     Active Substance: FOLIC ACID
  7. METHOTREXATE (METHOTREXATE) [Concomitant]
     Active Substance: METHOTREXATE
  8. AMOXICILLIN (AMOXICILLIN) [Concomitant]
     Active Substance: AMOXICILLIN
  9. FUROSEMIDE (MANUFACTURER UNKNOWN) (FUROSEMIDE) (FUROSEMIDE) [Suspect]
     Active Substance: FUROSEMIDE
     Indication: PRODUCT USED FOR UNKNOWN INDICATION
     Dosage: 40 MG, 1 IN 1 D, ORAL
     Route: 048
     Dates: start: 20120917

REACTIONS (5)
  - Vomiting [None]
  - Confusional state [None]
  - Drug interaction [None]
  - Urosepsis [None]
  - Acute kidney injury [None]

NARRATIVE: CASE EVENT DATE: 20120917
